FAERS Safety Report 19636641 (Version 1)
Quarter: 2021Q3

REPORT INFORMATION
  Report Type: Spontaneous
  Country: CN (occurrence: CN)
  Receive Date: 20210730
  Receipt Date: 20210730
  Transmission Date: 20211014
  Serious: Yes (Other)
  Sender: FDA-Public Use
  Company Number: CN-DRREDDYS-OTH/CHN/21/0138282

PATIENT
  Age: 33 Year
  Sex: Male
  Weight: 55 kg

DRUGS (2)
  1. OLANZAPINE. [Suspect]
     Active Substance: OLANZAPINE
     Indication: PSYCHOTIC DISORDER
     Dosage: 5 G THREE TIMES DAILY
     Route: 048
     Dates: start: 20201215, end: 20210720
  2. MAGNESIUM VALPROATE [Concomitant]
     Active Substance: VALPROATE MAGNESIUM
     Indication: PSYCHOTIC DISORDER
     Dosage: 0.250000G,TID
     Route: 048
     Dates: start: 20201216, end: 20210720

REACTIONS (1)
  - Hypokalaemia [Recovered/Resolved]

NARRATIVE: CASE EVENT DATE: 20210427
